FAERS Safety Report 20428270 (Version 2)
Quarter: 2022Q1

REPORT INFORMATION
  Report Type: Report from Study
  Country: CA (occurrence: CA)
  Receive Date: 20220204
  Receipt Date: 20220208
  Transmission Date: 20220423
  Serious: Yes (Life-Threatening, Hospitalization)
  Sender: FDA-Public Use
  Company Number: CA-JNJFOC-20220204051

PATIENT
  Age: 33 Year
  Sex: Female
  Weight: 59.928 kg

DRUGS (1)
  1. REMICADE [Suspect]
     Active Substance: INFLIXIMAB
     Indication: Crohn^s disease
     Dosage: THERAPY START DATE 05-JUN-2019
     Route: 042
     Dates: start: 20150611

REACTIONS (1)
  - Brain neoplasm [Recovering/Resolving]

NARRATIVE: CASE EVENT DATE: 20220120
